FAERS Safety Report 15961160 (Version 1)
Quarter: 2019Q1

REPORT INFORMATION
  Report Type: Report from Study
  Country: GB (occurrence: GB)
  Receive Date: 20190214
  Receipt Date: 20190214
  Transmission Date: 20190417
  Serious: Yes (Death, Hospitalization)
  Sender: FDA-Public Use
  Company Number: GB-ROCHE-1582393

PATIENT
  Age: 92 Year
  Sex: Male
  Weight: 56.1 kg

DRUGS (6)
  1. CHLORPHENIRAMINE. [Concomitant]
     Active Substance: CHLORPHENIRAMINE
  2. RITUXIMAB. [Suspect]
     Active Substance: RITUXIMAB
     Route: 058
     Dates: start: 20160309, end: 20160309
  3. RITUXIMAB. [Suspect]
     Active Substance: RITUXIMAB
     Route: 058
     Dates: start: 20150324, end: 20150324
  4. RITUXIMAB. [Suspect]
     Active Substance: RITUXIMAB
     Indication: NON-HODGKIN^S LYMPHOMA
     Route: 042
     Dates: start: 20140625, end: 20150625
  5. PARACETAMOL [Concomitant]
     Active Substance: ACETAMINOPHEN
  6. RITUXIMAB. [Suspect]
     Active Substance: RITUXIMAB
     Indication: NON-HODGKIN^S LYMPHOMA
     Route: 058
     Dates: start: 20140730, end: 20161108

REACTIONS (4)
  - Femur fracture [Recovered/Resolved with Sequelae]
  - Facial bones fracture [Recovered/Resolved with Sequelae]
  - Pancreatic carcinoma [Fatal]
  - Fall [Unknown]

NARRATIVE: CASE EVENT DATE: 20150517
